FAERS Safety Report 23074859 (Version 4)
Quarter: 2024Q1

REPORT INFORMATION
  Report Type: Spontaneous
  Country: JP (occurrence: JP)
  Receive Date: 20231017
  Receipt Date: 20240228
  Transmission Date: 20240410
  Serious: Yes (Death)
  Sender: FDA-Public Use
  Company Number: JP-SA-2023SA315566

PATIENT
  Age: 74 Year
  Sex: Male
  Weight: 72 kg

DRUGS (9)
  1. OXALIPLATIN [Suspect]
     Active Substance: OXALIPLATIN
     Indication: Rectal cancer
     Dosage: 85 MG, Q3W
     Route: 041
     Dates: start: 20231010, end: 20231010
  2. LEVOLEUCOVORIN CALCIUM [Suspect]
     Active Substance: LEVOLEUCOVORIN CALCIUM
     Indication: Rectal cancer
     Dosage: 200 MG/M2, Q3W
     Route: 041
     Dates: start: 20231010, end: 20231010
  3. LEVOLEUCOVORIN CALCIUM [Suspect]
     Active Substance: LEVOLEUCOVORIN CALCIUM
     Dosage: 400 MG, Q3W
     Route: 040
     Dates: start: 20231010, end: 20231010
  4. FLUOROURACIL [Suspect]
     Active Substance: FLUOROURACIL
     Indication: Rectal cancer
     Dosage: 400 MG/M2, Q3W
     Route: 040
     Dates: start: 20231010, end: 20231010
  5. FLUOROURACIL [Suspect]
     Active Substance: FLUOROURACIL
     Dosage: 2400 MG/M2, Q3W
     Route: 041
     Dates: start: 20231010, end: 20231012
  6. PALONOSETRON [Concomitant]
     Active Substance: PALONOSETRON
     Dosage: UNK
     Dates: start: 20231010, end: 20231010
  7. ORGADRONE S [Concomitant]
     Dosage: UNK
  8. ISOSORBIDE DINITRATE [Concomitant]
     Active Substance: ISOSORBIDE DINITRATE
     Dosage: UNK
     Dates: start: 20230916, end: 20230929
  9. VIBEGRON [Concomitant]
     Active Substance: VIBEGRON
     Dosage: UNK
     Dates: start: 20230929, end: 20231012

REACTIONS (8)
  - Cardiac failure acute [Fatal]
  - Hyperhidrosis [Fatal]
  - Faeces soft [Unknown]
  - Epigastric discomfort [Unknown]
  - Myocardial infarction [Unknown]
  - Vomiting [Recovering/Resolving]
  - Embolism [Unknown]
  - Diarrhoea [Unknown]

NARRATIVE: CASE EVENT DATE: 20231001
